FAERS Safety Report 6539719-5 (Version None)
Quarter: 2010Q1

REPORT INFORMATION
  Report Type: 
  Country: None (occurrence: None)
  Receive Date: 20100115
  Receipt Date: 20100107
  Transmission Date: 20100710
  Serious: Yes (Hospitalization, Other)
  Sender: FDA-Public Use
  Company Number: US-AMGEN-QUU384368

PATIENT
  Sex: Female

DRUGS (1)
  1. ENBREL [Suspect]
     Indication: RHEUMATOID ARTHRITIS
     Route: 058
     Dates: start: 20001201

REACTIONS (5)
  - ABDOMINAL DISTENSION [None]
  - ABDOMINAL HERNIA [None]
  - POST PROCEDURAL COMPLICATION [None]
  - SKIN INFECTION [None]
  - WEIGHT DECREASED [None]
